FAERS Safety Report 5302027-4 (Version None)
Quarter: 2007Q2

REPORT INFORMATION
  Report Type: 
  Country: None (occurrence: None)
  Receive Date: 20070416
  Receipt Date: 20070416
  Transmission Date: 20071010
  Serious: No
  Sender: FDA-Public Use
  Company Number: None

PATIENT
  Age: 45 Year
  Sex: Male
  Weight: 88.4514 kg

DRUGS (2)
  1. PLAVIX [Suspect]
     Indication: ANTIPLATELET THERAPY
     Dosage: 1   DAILY   PO
     Route: 048
     Dates: start: 20070213, end: 20070215
  2. PLAVIX [Suspect]
     Indication: ATRIAL SEPTAL DEFECT REPAIR
     Dosage: 1   DAILY   PO
     Route: 048
     Dates: start: 20070213, end: 20070215

REACTIONS (7)
  - ABDOMINAL PAIN [None]
  - CHILLS [None]
  - DISORIENTATION [None]
  - DRUG INTOLERANCE [None]
  - NAUSEA [None]
  - PARAESTHESIA [None]
  - URINE OUTPUT INCREASED [None]
